FAERS Safety Report 26101213 (Version 1)
Quarter: 2025Q4

REPORT INFORMATION
  Report Type: Report from Study
  Country: US (occurrence: US)
  Receive Date: 20251128
  Receipt Date: 20251128
  Transmission Date: 20260117
  Serious: Yes (Hospitalization)
  Sender: JOHNSON AND JOHNSON
  Company Number: US-JNJFOC-20251151936

PATIENT
  Age: 75 Year
  Sex: Female
  Weight: 65.4 kg

DRUGS (1)
  1. CILTACABTAGENE AUTOLEUCEL [Suspect]
     Active Substance: CILTACABTAGENE AUTOLEUCEL
     Indication: Plasma cell myeloma
     Dosage: 1 BAG, ONCE
     Route: 042
     Dates: start: 20251027, end: 20251027

REACTIONS (2)
  - Pyrexia [Recovered/Resolved]
  - Pharyngitis [Recovering/Resolving]

NARRATIVE: CASE EVENT DATE: 20251105
